FAERS Safety Report 22297205 (Version 2)
Quarter: 2023Q2

REPORT INFORMATION
  Report Type: Report from Study
  Country: US (occurrence: US)
  Receive Date: 20230509
  Receipt Date: 20230609
  Transmission Date: 20230722
  Serious: No
  Sender: FDA-Public Use
  Company Number: US-ABBVIE-4705683

PATIENT
  Sex: Female

DRUGS (1)
  1. HUMIRA [Suspect]
     Active Substance: ADALIMUMAB
     Indication: Uveitis
     Dosage: CITRATE FREE?EVENT ONSET DATE SHOULD BE 2023
     Route: 058
     Dates: start: 20230103

REACTIONS (2)
  - Abdominal pain [Unknown]
  - Malaise [Unknown]
